FAERS Safety Report 9612406 (Version 1)
Quarter: 2013Q4

REPORT INFORMATION
  Report Type: Spontaneous
  Country: US (occurrence: US)
  Receive Date: 20131010
  Receipt Date: 20131010
  Transmission Date: 20140711
  Serious: Yes (Other)
  Sender: FDA-Public Use
  Company Number: US-ASTELLAS-2013US008875

PATIENT
  Sex: Female
  Weight: 73 kg

DRUGS (3)
  1. MYRBETRIQ [Suspect]
     Indication: HYPERTONIC BLADDER
     Dosage: 25 MG, UID/QD
     Route: 048
     Dates: start: 2013
  2. MYRBETRIQ [Suspect]
     Dosage: 25 MG, UID/QD
     Route: 048
     Dates: start: 201308
  3. UNSPECIFIED MEDICATION [Suspect]
     Indication: PRODUCT USED FOR UNKNOWN INDICATION
     Dosage: UNK
     Route: 065

REACTIONS (3)
  - Blood pressure increased [Unknown]
  - Dry mouth [Unknown]
  - Dizziness [Unknown]
